FAERS Safety Report 6169310-4 (Version None)
Quarter: 2009Q2

REPORT INFORMATION
  Report Type: 
  Country: None (occurrence: None)
  Receive Date: 20090424
  Receipt Date: 20090417
  Transmission Date: 20091009
  Serious: Yes (Disabling)
  Sender: FDA-Public Use
  Company Number: OMPQ-NO-0904S-0271

PATIENT
  Sex: Male

DRUGS (2)
  1. OMNIPAQUE 300 [Suspect]
     Indication: DRUG USE FOR UNKNOWN INDICATION
     Dosage: SINGLE DOSE
     Dates: start: 20090101, end: 20090101
  2. OMNIPAQUE 300 [Suspect]
     Indication: DRUG USE FOR UNKNOWN INDICATION
     Dosage: SINGLE DOSE
     Dates: start: 20090101, end: 20090101

REACTIONS (3)
  - FEELING HOT [None]
  - MALAISE [None]
  - UNEVALUABLE EVENT [None]
